FAERS Safety Report 9751713 (Version 1)
Quarter: 2013Q4

REPORT INFORMATION
  Report Type: Spontaneous
  Country: AT (occurrence: AT)
  Receive Date: 20131213
  Receipt Date: 20131213
  Transmission Date: 20140711
  Serious: Yes (Death, Other)
  Sender: FDA-Public Use
  Company Number: AT-ROCHE-1315742

PATIENT
  Age: 55 Year
  Sex: Male

DRUGS (4)
  1. AVASTIN [Suspect]
     Indication: PRODUCT USED FOR UNKNOWN INDICATION
     Dosage: IN STANDARD DOSING
     Route: 065
  2. OXALIPLATIN [Suspect]
     Indication: PRODUCT USED FOR UNKNOWN INDICATION
     Dosage: CHEMOTHERAPY-SCHEME-STANDARD DOSING; 12 CYCLES
     Route: 065
     Dates: start: 201304, end: 201310
  3. FOLINIC ACID [Suspect]
     Indication: PRODUCT USED FOR UNKNOWN INDICATION
     Dosage: CHEMOTHERAPY SCHEME STANDARD DOSING FOR 12 CYCLES
     Route: 065
  4. 5-FLUOROURACIL [Suspect]
     Indication: PRODUCT USED FOR UNKNOWN INDICATION
     Dosage: CHEMOTHERAPY SCHEME STANDARD DOSING FOR 12 CYCLES
     Route: 065

REACTIONS (4)
  - Personality change [Fatal]
  - Aphasia [Fatal]
  - Metastases to central nervous system [Unknown]
  - Cerebral infarction [Unknown]
